FAERS Safety Report 25565123 (Version 1)
Quarter: 2025Q3

REPORT INFORMATION
  Report Type: Spontaneous
  Country: SD (occurrence: SD)
  Receive Date: 20250716
  Receipt Date: 20250716
  Transmission Date: 20251020
  Serious: Yes (Other)
  Sender: RANBAXY
  Company Number: SD-SUN PHARMACEUTICAL INDUSTRIES LTD-2025RR-517232

PATIENT
  Age: 34 Year
  Sex: Male

DRUGS (1)
  1. WARFARIN [Suspect]
     Active Substance: WARFARIN
     Indication: Coagulopathy
     Dosage: 10 MILLIGRAM, DAILY
     Route: 065

REACTIONS (4)
  - Overdose [Unknown]
  - Product use issue [Unknown]
  - Thrombocytopenia [Recovered/Resolved]
  - Skin necrosis [Recovered/Resolved]
